FAERS Safety Report 8229202-3 (Version None)
Quarter: 2012Q1

REPORT INFORMATION
  Report Type: 
  Country: None (occurrence: None)
  Receive Date: 20120322
  Receipt Date: 20120312
  Transmission Date: 20120608
  Serious: Yes (Death)
  Sender: FDA-Public Use
  Company Number: DK-BRISTOL-MYERS SQUIBB COMPANY-16451742

PATIENT
  Age: 36 Year
  Sex: Male

DRUGS (3)
  1. OLANZAPINE [Suspect]
     Indication: SCHIZOPHRENIA
  2. ARIPIPRAZOLE [Suspect]
     Indication: SCHIZOPHRENIA
     Dosage: 1 TIME
     Dates: start: 20091201
  3. MIRTAZAPINE [Suspect]
     Indication: SCHIZOPHRENIA

REACTIONS (3)
  - EOSINOPHILIC MYOCARDITIS [None]
  - ARRHYTHMIA [None]
  - DRUG LEVEL INCREASED [None]
